FAERS Safety Report 9821315 (Version 1)
Quarter: 2014Q1

REPORT INFORMATION
  Report Type: Spontaneous
  Country: AR (occurrence: AR)
  Receive Date: 20140116
  Receipt Date: 20140116
  Transmission Date: 20141002
  Serious: Yes (Other)
  Sender: FDA-Public Use
  Company Number: AR-BAYER-2014-004455

PATIENT
  Age: 37 Year
  Sex: Female

DRUGS (8)
  1. ACETYLSALICYLIC ACID({=100 MG) [Suspect]
     Indication: ANTIPHOSPHOLIPID SYNDROME
     Dosage: DURING FIRST TRIMESTER
  2. METHOTREXATE [Suspect]
     Indication: RHEUMATOID ARTHRITIS
     Dosage: 20 MG, OW UP TO 13 DAYS PRIOR TO CONCEPTION
     Route: 030
  3. PENICILLAMINE [Concomitant]
     Dosage: DURING FIRST TRIMESTER
  4. METFORMIN [Concomitant]
     Dosage: DURING FIRST TRIMESTER
  5. LEVOTHYROXINE [Concomitant]
     Indication: HYPOTHYROIDISM
     Dosage: DURING FIRST TRIMESTER
  6. BUDESONID [Concomitant]
     Indication: ASTHMA
     Dosage: DURING FIRST TRIMESTER
  7. FLUTICASONE [Concomitant]
     Indication: ASTHMA
     Dosage: DURING FIRST TRIMESTER
  8. SALBUTAMOL [Concomitant]
     Indication: ASTHMA
     Dosage: DURING FIRST TRIMESTER

REACTIONS (3)
  - Abortion spontaneous [None]
  - Maternal exposure during pregnancy [None]
  - Off label use [None]
